FAERS Safety Report 6661350-1 (Version None)
Quarter: 2010Q1

REPORT INFORMATION
  Report Type: 
  Country: None (occurrence: None)
  Receive Date: 20100331
  Receipt Date: 20100318
  Transmission Date: 20100710
  Serious: Yes (Hospitalization)
  Sender: FDA-Public Use
  Company Number: JP-JNJFOC-20100305826

PATIENT
  Sex: Female
  Weight: 52 kg

DRUGS (8)
  1. DOXIL [Suspect]
     Indication: OVARIAN CANCER RECURRENT
     Route: 042
  2. DOXIL [Suspect]
     Route: 042
  3. DOXIL [Suspect]
     Route: 042
  4. DOXIL [Suspect]
     Route: 042
  5. DAIO-KANZO-TO [Concomitant]
     Route: 048
  6. AZUNOL [Concomitant]
     Indication: PROPHYLAXIS
     Route: 048
  7. SUNRYTHM [Concomitant]
     Route: 048
  8. MYSLEE [Concomitant]
     Route: 048

REACTIONS (1)
  - INTERSTITIAL LUNG DISEASE [None]
